FAERS Safety Report 18707410 (Version 1)
Quarter: 2021Q1

REPORT INFORMATION
  Report Type: Spontaneous
  Country: US (occurrence: US)
  Receive Date: 20210106
  Receipt Date: 20210106
  Transmission Date: 20210419
  Serious: Yes (Death)
  Sender: FDA-Public Use
  Company Number: None

PATIENT
  Age: 63 Year
  Sex: Female

DRUGS (10)
  1. BISACODYL. [Concomitant]
     Active Substance: BISACODYL
  2. DEXILANT [Concomitant]
     Active Substance: DEXLANSOPRAZOLE
  3. RANITIDINE. [Concomitant]
     Active Substance: RANITIDINE
  4. SUCRALFATE. [Concomitant]
     Active Substance: SUCRALFATE
  5. PHILLIPS [Concomitant]
     Active Substance: DOCUSATE SODIUM
  6. LEXAPRO [Concomitant]
     Active Substance: ESCITALOPRAM OXALATE
  7. EPIVIR HBV [Suspect]
     Active Substance: LAMIVUDINE
     Indication: CHRONIC HEPATITIS B
     Route: 048
  8. LEVOTHYROXINE. [Concomitant]
     Active Substance: LEVOTHYROXINE
  9. VITAMIN D [Concomitant]
     Active Substance: VITAMIN D NOS
  10. CALMOSEPTINE [Concomitant]
     Active Substance: MENTHOL\ZINC OXIDE

REACTIONS (1)
  - Death [None]
